FAERS Safety Report 6015631-5 (Version None)
Quarter: 2008Q4

REPORT INFORMATION
  Report Type: 
  Country: None (occurrence: None)
  Receive Date: 20081222
  Receipt Date: 20081120
  Transmission Date: 20090506
  Serious: No
  Sender: FDA-Public Use
  Company Number: US-BAYER-200814494BCC

PATIENT
  Age: 64 Year
  Sex: Female
  Weight: 64 kg

DRUGS (9)
  1. ALEVE [Suspect]
     Indication: MYALGIA
     Dosage: TOTAL DAILY DOSE: 440 MG  UNIT DOSE: 220 MG
     Route: 048
  2. BAYER ASPIRIN WITH HEART ADVANTAGE [Suspect]
     Indication: DRUG USE FOR UNKNOWN INDICATION
  3. ASPIRIN [Concomitant]
  4. BISOPROLOL [Concomitant]
  5. SYNTHROID [Concomitant]
  6. CHOLESTEROL MEDICATIONS [Concomitant]
  7. ACETAMINOPHEN [Concomitant]
  8. ADVIL LIQUI-GELS [Concomitant]
  9. RED YEAST RICE [Concomitant]

REACTIONS (1)
  - MYALGIA [None]
